FAERS Safety Report 6976239-8 (Version None)
Quarter: 2010Q3

REPORT INFORMATION
  Report Type: 
  Country: None (occurrence: None)
  Receive Date: 20100910
  Receipt Date: 20100901
  Transmission Date: 20110219
  Serious: Yes (Other)
  Sender: FDA-Public Use
  Company Number: US-PFIZER INC-2010111267

PATIENT
  Sex: Female

DRUGS (2)
  1. LIPITOR [Suspect]
     Dosage: UNK
  2. WELLBUTRIN [Suspect]
     Dosage: UNK

REACTIONS (2)
  - BURNING SENSATION [None]
  - CEREBROVASCULAR ACCIDENT [None]
